FAERS Safety Report 6842051-3 (Version None)
Quarter: 2010Q3

REPORT INFORMATION
  Report Type: 
  Country: None (occurrence: None)
  Receive Date: 20100714
  Receipt Date: 20071227
  Transmission Date: 20110219
  Serious: No
  Sender: FDA-Public Use
  Company Number: US-PFIZER INC-2007060592

PATIENT
  Sex: Female
  Weight: 65.9 kg

DRUGS (4)
  1. CHANTIX [Suspect]
     Indication: SMOKING CESSATION THERAPY
     Dates: start: 20070701
  2. GABAPENTIN [Concomitant]
     Indication: CYSTITIS INTERSTITIAL
  3. TOPROL-XL [Concomitant]
     Indication: HYPERTENSION
  4. ROZEREM [Concomitant]
     Indication: INSOMNIA

REACTIONS (4)
  - ANXIETY [None]
  - DRUG INEFFECTIVE [None]
  - INSOMNIA [None]
  - IRRITABILITY [None]
